FAERS Safety Report 4930926-1 (Version None)
Quarter: 2006Q1

REPORT INFORMATION
  Report Type: 
  Country: None (occurrence: None)
  Receive Date: 20060227
  Receipt Date: 20050718
  Transmission Date: 20060701
  Serious: Yes (Hospitalization, Other)
  Sender: FDA-Public Use
  Company Number: US-ELI_LILLY_AND_CO-US_0411107731

PATIENT
  Age: 42 Year
  Sex: Female

DRUGS (1)
  1. PERMAX [Suspect]
     Indication: MUSCLE TWITCHING
     Dosage: 2 MG;QD
     Dates: start: 19960101, end: 20050309

REACTIONS (10)
  - ANXIETY [None]
  - COMPULSIONS [None]
  - DEPRESSION [None]
  - DRUG INEFFECTIVE [None]
  - FEELING GUILTY [None]
  - INSOMNIA [None]
  - MARITAL PROBLEM [None]
  - OBSESSIVE-COMPULSIVE DISORDER [None]
  - PATHOLOGICAL GAMBLING [None]
  - SUICIDAL IDEATION [None]
